FAERS Safety Report 23181446 (Version 1)
Quarter: 2023Q4

REPORT INFORMATION
  Report Type: Spontaneous
  Country: FR (occurrence: FR)
  Receive Date: 20231114
  Receipt Date: 20231114
  Transmission Date: 20240110
  Serious: Yes (Hospitalization, Disabling, Other)
  Sender: FDA-Public Use
  Company Number: FR-009507513-2304FRA007724

PATIENT
  Age: 34 Year
  Sex: Female

DRUGS (6)
  1. TRAMADOL [Suspect]
     Active Substance: TRAMADOL\TRAMADOL HYDROCHLORIDE
     Indication: Product used for unknown indication
     Dosage: UNK
     Route: 065
  2. ACUPAN [Suspect]
     Active Substance: NEFOPAM HYDROCHLORIDE
     Indication: Product used for unknown indication
     Dosage: UNK
     Route: 065
  3. VARILRIX [Suspect]
     Active Substance: VARICELLA-ZOSTER VIRUS STRAIN OKA/MERCK LIVE ANTIGEN
     Indication: Prophylaxis
     Dosage: UNK
     Route: 065
     Dates: start: 20180301
  4. VARIVAX [Suspect]
     Active Substance: VARICELLA-ZOSTER VIRUS STRAIN OKA/MERCK LIVE ANTIGEN
     Indication: Prophylaxis
     Dosage: UNK
     Route: 030
     Dates: start: 20170905
  5. PRIMPERAN [Suspect]
     Active Substance: METOCLOPRAMIDE HYDROCHLORIDE
     Indication: Product used for unknown indication
     Dosage: UNK
     Route: 065
  6. DOLIPRANE [Suspect]
     Active Substance: ACETAMINOPHEN
     Indication: Product used for unknown indication
     Dosage: UNK
     Route: 065

REACTIONS (84)
  - Chronic inflammatory demyelinating polyradiculoneuropathy [Unknown]
  - Acute polyneuropathy [Unknown]
  - Cerebrovascular accident [Unknown]
  - Cranial nerve injury [Unknown]
  - Guillain-Barre syndrome [Unknown]
  - CSF test abnormal [Unknown]
  - Neutropenia [Unknown]
  - Facial paralysis [Unknown]
  - Diplegia [Unknown]
  - Formication [Unknown]
  - Dysphonia [Unknown]
  - Pollakiuria [Unknown]
  - Cell death [Unknown]
  - Nocturia [Unknown]
  - Dyspnoea exertional [Unknown]
  - CSF protein [Unknown]
  - Eyelid ptosis [Unknown]
  - Muscle contractions involuntary [Unknown]
  - Peritoneal lesion [Unknown]
  - Microcytic anaemia [Unknown]
  - Areflexia [Unknown]
  - Helicobacter infection [Unknown]
  - Pain [Unknown]
  - Intestinal metaplasia [Unknown]
  - Asthenia [Unknown]
  - Tinnitus [Unknown]
  - Lymphadenopathy [Unknown]
  - Ageusia [Unknown]
  - Hypotonia [Unknown]
  - Asthenia [Unknown]
  - Adverse event [Unknown]
  - Eyelid function disorder [Unknown]
  - Hyperacusis [Unknown]
  - Large intestine polyp [Unknown]
  - Antinuclear antibody positive [Unknown]
  - Hypoaesthesia [Unknown]
  - Abdominal pain [Unknown]
  - Gastritis [Unknown]
  - Dysgeusia [Unknown]
  - Hypersomnia [Unknown]
  - Myalgia [Unknown]
  - Corneal reflex decreased [Unknown]
  - Weight decreased [Unknown]
  - Insomnia [Unknown]
  - Photophobia [Unknown]
  - Motor dysfunction [Unknown]
  - Night sweats [Unknown]
  - Iron deficiency [Unknown]
  - Muscle spasms [Unknown]
  - Throat tightness [Unknown]
  - Blood pressure abnormal [Unknown]
  - Nystagmus [Unknown]
  - Chest pain [Unknown]
  - Chest discomfort [Unknown]
  - Musculoskeletal chest pain [Unknown]
  - Migraine without aura [Unknown]
  - Hypertension [Unknown]
  - Positron emission tomogram abnormal [Unknown]
  - Dysphonia [Unknown]
  - Pyrexia [Unknown]
  - Decreased vibratory sense [Unknown]
  - Magnetic resonance imaging abnormal [Unknown]
  - Laryngeal pain [Unknown]
  - Cough [Unknown]
  - Sciatica [Unknown]
  - Exposure to SARS-CoV-2 [Unknown]
  - Pharyngeal disorder [Unknown]
  - Dysphagia [Unknown]
  - Diplopia [Recovered/Resolved]
  - Mixed anxiety and depressive disorder [Unknown]
  - Anaesthesia [Unknown]
  - Exposure to communicable disease [Unknown]
  - Gastrointestinal disorder [Unknown]
  - Paraesthesia [Unknown]
  - Headache [Unknown]
  - Vomiting [Unknown]
  - Dizziness [Unknown]
  - Nausea [Unknown]
  - Tachycardia [Unknown]
  - Tremor [Unknown]
  - Fatigue [Unknown]
  - Palpitations [Unknown]
  - Drug ineffective [Unknown]
  - Eye pain [Unknown]

NARRATIVE: CASE EVENT DATE: 20171021
